FAERS Safety Report 6521347-9 (Version None)
Quarter: 2009Q4

REPORT INFORMATION
  Report Type: 
  Country: None (occurrence: None)
  Receive Date: 20091224
  Receipt Date: 20091209
  Transmission Date: 20100525
  Serious: Yes (Other)
  Sender: FDA-Public Use
  Company Number: 2009-00106

PATIENT
  Age: 59 Year
  Sex: Female
  Weight: 71.1 kg

DRUGS (15)
  1. DIVALPROEX SODIUM [Suspect]
     Indication: CONVULSION
     Dosage: 1000 MG, 2 IN 1 D; 250 MG IN MORNING AND 500 MG IN EVENING; 250 MG TWICE A DAY
  2. ASPIRIN [Suspect]
     Indication: CARDIOVASCULAR EVENT PROPHYLAXIS
     Dosage: 1 D
  3. METFORMIN [Suspect]
     Dosage: 1 D
  4. SIMVASTATIN [Concomitant]
  5. RISPERIDONE [Concomitant]
  6. ATENOLOL [Concomitant]
  7. BENEZEPIL [Concomitant]
  8. HYDROCHLOROTHIAZIDE [Concomitant]
  9. GLIPIZIDE [Concomitant]
  10. NIACIN [Concomitant]
  11. LEVOTHYROXINE SODIUM [Concomitant]
  12. RANITIDINE [Concomitant]
  13. LACUTLOSE [Concomitant]
  14. CALCIUM AND VITAMIN D + E SUPPLEMENTS [Concomitant]
  15. LORAZEPAM [Concomitant]

REACTIONS (7)
  - DRUG INTERACTION [None]
  - DRUG TOXICITY [None]
  - HYPERGLYCAEMIA [None]
  - HYPOALBUMINAEMIA [None]
  - HYPOTENSION [None]
  - NEUROTOXICITY [None]
  - PERSONALITY CHANGE [None]
